FAERS Safety Report 13323332 (Version 1)
Quarter: 2017Q1

REPORT INFORMATION
  Report Type: Report from Study
  Country: DE (occurrence: DE)
  Receive Date: 20170310
  Receipt Date: 20170310
  Transmission Date: 20170428
  Serious: Yes (Hospitalization)
  Sender: FDA-Public Use
  Company Number: DE-UNICHEM LABORATORIES LIMITED-UCM201703-000059

PATIENT
  Age: 32 Year
  Sex: Female

DRUGS (3)
  1. DIVALPROEX SODIUM. [Suspect]
     Active Substance: DIVALPROEX SODIUM
  2. MIRTAZAPINE. [Suspect]
     Active Substance: MIRTAZAPINE
  3. VENLAFAXINE [Suspect]
     Active Substance: VENLAFAXINE HYDROCHLORIDE

REACTIONS (10)
  - Thrombocytopenia [Recovered/Resolved]
  - Cardiopulmonary failure [Recovered/Resolved]
  - Depressed level of consciousness [Recovered/Resolved]
  - Hyperammonaemia [Recovered/Resolved]
  - Pneumonia aspiration [Recovered/Resolved]
  - Somnolence [Recovered/Resolved]
  - International normalised ratio increased [Recovered/Resolved]
  - Overdose [Unknown]
  - Vomiting [Recovered/Resolved]
  - Hypotension [Recovered/Resolved]
